FAERS Safety Report 4654586-2 (Version None)
Quarter: 2005Q2

REPORT INFORMATION
  Report Type: 
  Country: None (occurrence: None)
  Receive Date: 20050404
  Receipt Date: 20041201
  Transmission Date: 20051028
  Serious: No
  Sender: FDA-Public Use
  Company Number: USA041285363

PATIENT
  Sex: Female

DRUGS (1)
  1. CYMBALTA (DULOEXTINE HYDROCHLORIDE) [Suspect]
     Dosage: 60 MG

REACTIONS (4)
  - ANXIETY [None]
  - FAMILY STRESS [None]
  - IRRITABILITY [None]
  - SOCIAL AVOIDANT BEHAVIOUR [None]
